FAERS Safety Report 11299200 (Version 1)
Quarter: 2015Q3

REPORT INFORMATION
  Report Type: Spontaneous
  Country: US (occurrence: US)
  Receive Date: 20150722
  Receipt Date: 20150722
  Transmission Date: 20151125
  Serious: No
  Sender: FDA-Public Use
  Company Number: US-ELI_LILLY_AND_COMPANY-US200912006369

PATIENT
  Age: 50 Year
  Sex: Female

DRUGS (3)
  1. HUMATROPE [Suspect]
     Active Substance: SOMATROPIN
     Dosage: 0.3 DF, QD
  2. CORTEF [Concomitant]
     Active Substance: HYDROCORTISONE
     Indication: UPPER RESPIRATORY TRACT INFECTION
  3. HUMATROPE [Suspect]
     Active Substance: SOMATROPIN
     Indication: HYPOPITUITARISM
     Dosage: UNK, UNK
     Dates: start: 2001

REACTIONS (3)
  - Fatigue [Unknown]
  - Upper respiratory tract infection [Recovering/Resolving]
  - Drug dose omission [Unknown]

NARRATIVE: CASE EVENT DATE: 20091227
